FAERS Safety Report 7138231-2 (Version None)
Quarter: 2010Q4

REPORT INFORMATION
  Report Type: 
  Country: None (occurrence: None)
  Receive Date: 20101202
  Receipt Date: 20101202
  Transmission Date: 20110411
  Serious: Yes (Hospitalization)
  Sender: FDA-Public Use
  Company Number: None

PATIENT
  Age: 60 Year
  Sex: Male
  Weight: 131 kg

DRUGS (1)
  1. SUCCINYLCHOLINE CHLORIDE [Suspect]
     Indication: SURGERY
     Dosage: 230 MG ONCE IV
     Route: 042
     Dates: start: 20101116, end: 20101116

REACTIONS (2)
  - MYALGIA [None]
  - POST PROCEDURAL COMPLICATION [None]
